FAERS Safety Report 9903058 (Version 2)
Quarter: 2014Q2

REPORT INFORMATION
  Report Type: Spontaneous
  Country: ZA (occurrence: ZA)
  Receive Date: 20140217
  Receipt Date: 20140528
  Transmission Date: 20141212
  Serious: Yes (Hospitalization)
  Sender: FDA-Public Use
  Company Number: PHHY2014ZA018684

PATIENT
  Age: 27 Year
  Sex: Male

DRUGS (3)
  1. DICLOFENAC [Suspect]
     Indication: BACK PAIN
     Dosage: 50 MG, DAILY
  2. GEN-PAYNE [Suspect]
     Indication: BACK PAIN
     Dosage: (2 TABLETS)
  3. GEN-PAYNE [Suspect]
     Dosage: UNK UKN, UNK

REACTIONS (4)
  - Hydronephrosis [Unknown]
  - Nephropathy toxic [Unknown]
  - Haematuria [Unknown]
  - Pain [Unknown]
